FAERS Safety Report 9279054 (Version 1)
Quarter: 2013Q2

REPORT INFORMATION
  Report Type: Other
  Country: GB (occurrence: GB)
  Receive Date: 20130508
  Receipt Date: 20130508
  Transmission Date: 20140414
  Serious: Yes (Other)
  Sender: FDA-Public Use
  Company Number: GB-WATSON-2013-07754

PATIENT
  Age: 32 Year
  Sex: Female
  Weight: 70 kg

DRUGS (2)
  1. CIPROFLOXACIN HYDROCHLORIDE (UNKNOWN) [Suspect]
     Indication: URINARY TRACT INFECTION
     Dosage: 500 MG, BID
     Route: 048
     Dates: start: 20130403, end: 20130412
  2. AMOXYCILLIN                        /00249601/ [Concomitant]
     Indication: URINARY TRACT INFECTION
     Dosage: 24 HOUR
     Route: 065

REACTIONS (3)
  - Weight bearing difficulty [Recovered/Resolved]
  - Pain in extremity [Not Recovered/Not Resolved]
  - Arthralgia [Not Recovered/Not Resolved]
